FAERS Safety Report 4368693-5 (Version None)
Quarter: 2004Q2

REPORT INFORMATION
  Report Type: 
  Country: None (occurrence: None)
  Receive Date: 20040528
  Receipt Date: 20040524
  Transmission Date: 20050107
  Serious: Yes (Death)
  Sender: FDA-Public Use
  Company Number: JP-JNJFOC-20040303437

PATIENT
  Age: 75 Year
  Sex: Male

DRUGS (12)
  1. LEVOFLOXACIN [Suspect]
     Indication: HAEMATOMA INFECTION
     Dosage: 500 MG
     Dates: start: 20040211, end: 20040222
  2. GENTAMICIN SULFATE [Concomitant]
  3. ESIDRIX [Concomitant]
  4. ISOPTIN [Concomitant]
  5. ZOCOR [Concomitant]
  6. ISCOVER (CLOPIDOGREL SULFATE) [Concomitant]
  7. ACERBON (LISINOPRIL) [Concomitant]
  8. VOLTAREN [Concomitant]
  9. AMBROXOL (AMBROXOL) [Concomitant]
  10. LACTULOSE [Concomitant]
  11. REMESTAN (TEMAZEPAM) [Concomitant]
  12. HEPARIN-FRACTION (HEPARIN-FRACTION) [Concomitant]

REACTIONS (4)
  - BLOOD CREATININE INCREASED [None]
  - C-REACTIVE PROTEIN INCREASED [None]
  - CEREBROVASCULAR ACCIDENT [None]
  - TENDON RUPTURE [None]
